FAERS Safety Report 17303517 (Version 3)
Quarter: 2020Q4

REPORT INFORMATION
  Report Type: Report from Study
  Country: US (occurrence: US)
  Receive Date: 20200122
  Receipt Date: 20201021
  Transmission Date: 20210113
  Serious: Yes (Life-Threatening, Hospitalization)
  Sender: FDA-Public Use
  Company Number: US-DAIICHI SANKYO (CHINA) HOLDINGS CO., LTD.-DSU-2019-134937

PATIENT
  Age: 79 Year
  Sex: Male
  Weight: 82.6 kg

DRUGS (37)
  1. TRASTUZUMAB DERUXTECAN. [Suspect]
     Active Substance: TRASTUZUMAB DERUXTECAN
     Dosage: 4.4 MG/KG, ONCE EVERY 3 WK
     Route: 042
     Dates: start: 20191114, end: 20191114
  2. TRASTUZUMAB DERUXTECAN. [Suspect]
     Active Substance: TRASTUZUMAB DERUXTECAN
     Dosage: 4.4 MG/KG, ONCE EVERY 3 WK
     Route: 042
     Dates: start: 20191226, end: 20191226
  3. TRASTUZUMAB DERUXTECAN. [Suspect]
     Active Substance: TRASTUZUMAB DERUXTECAN
     Dosage: 4.4 MG/KG, ONCE EVERY 3 WK
     Route: 042
     Dates: start: 20200116, end: 20200116
  4. NIVOLUMAB (DS-8201A STUDY) [Suspect]
     Active Substance: NIVOLUMAB
     Indication: HER2 POSITIVE BREAST CANCER
     Dosage: 360 MG, SINGLE
     Route: 042
     Dates: start: 20190821, end: 20190821
  5. NIVOLUMAB (DS-8201A STUDY) [Suspect]
     Active Substance: NIVOLUMAB
     Dosage: 360 MG, SINGLE
     Route: 042
     Dates: start: 20191003, end: 20191003
  6. NIVOLUMAB (DS-8201A STUDY) [Suspect]
     Active Substance: NIVOLUMAB
     Dosage: 360 MG, SINGLE
     Route: 042
     Dates: start: 20191114, end: 20191114
  7. FLOMAX [Concomitant]
     Active Substance: TAMSULOSIN HYDROCHLORIDE
     Indication: BENIGN PROSTATIC HYPERPLASIA
     Dosage: 0.4 MG, QD
     Route: 048
     Dates: start: 20190424
  8. VANCOMYCIN [Concomitant]
     Active Substance: VANCOMYCIN
     Indication: URINARY TRACT INFECTION
     Dosage: 1000 MG, QD
     Route: 042
     Dates: start: 20190821, end: 20190821
  9. SODIUM CHLORIDE. [Concomitant]
     Active Substance: SODIUM CHLORIDE
     Dosage: 2 L, SINGLE
     Route: 042
     Dates: start: 20190822, end: 20190822
  10. LEVAQUIN [Concomitant]
     Active Substance: LEVOFLOXACIN
     Indication: URINARY TRACT INFECTION
     Dosage: 500 MG, QD
     Route: 048
     Dates: start: 20190827, end: 20190903
  11. NIVOLUMAB (DS-8201A STUDY) [Suspect]
     Active Substance: NIVOLUMAB
     Dosage: 360 MG, SINGLE
     Route: 042
     Dates: start: 20190910, end: 20190910
  12. LOVENOX [Concomitant]
     Active Substance: ENOXAPARIN SODIUM
     Indication: ESSENTIAL HYPERTENSION
     Dosage: 120 MG, QD
     Route: 058
     Dates: start: 20190819, end: 20190820
  13. SODIUM CHLORIDE. [Concomitant]
     Active Substance: SODIUM CHLORIDE
     Dosage: 0.5 L, SINGLE
     Route: 042
     Dates: start: 20190823, end: 20190825
  14. TRASTUZUMAB DERUXTECAN. [Suspect]
     Active Substance: TRASTUZUMAB DERUXTECAN
     Indication: TRANSITIONAL CELL CARCINOMA
     Dosage: 4.4 MG/KG, ONCE EVERY 3 WK
     Route: 042
     Dates: start: 20190910, end: 20190910
  15. PROSCAR [Concomitant]
     Active Substance: FINASTERIDE
     Indication: BENIGN PROSTATIC HYPERPLASIA
     Dosage: 5 MG, QD
     Route: 048
     Dates: start: 20190315
  16. AMPICILLIN [Concomitant]
     Active Substance: AMPICILLIN
     Indication: URINARY TRACT INFECTION
     Dosage: 1000 MG, TID
     Route: 042
     Dates: start: 20190822, end: 20190823
  17. METPROLOL [Concomitant]
     Active Substance: METOPROLOL
     Indication: ESSENTIAL HYPERTENSION
     Dosage: 25 MG, QD
     Route: 048
     Dates: start: 20190819, end: 20190821
  18. SODIUM CHLORIDE. [Concomitant]
     Active Substance: SODIUM CHLORIDE
     Indication: URINARY TRACT INFECTION
     Dosage: 1 L, SINGLE
     Route: 042
     Dates: start: 20190821, end: 20190821
  19. NIVOLUMAB (DS-8201A STUDY) [Suspect]
     Active Substance: NIVOLUMAB
     Dosage: 360 MG, SINGLE
     Route: 042
     Dates: start: 20191205, end: 20191205
  20. NIVOLUMAB (DS-8201A STUDY) [Suspect]
     Active Substance: NIVOLUMAB
     Dosage: 360 MG, SINGLE
     Route: 042
     Dates: start: 20191226, end: 20191226
  21. NIVOLUMAB (DS-8201A STUDY) [Suspect]
     Active Substance: NIVOLUMAB
     Dosage: 360 MG, SINGLE
     Route: 042
     Dates: start: 20200206, end: 20200206
  22. TRASTUZUMAB DERUXTECAN. [Suspect]
     Active Substance: TRASTUZUMAB DERUXTECAN
     Dosage: 4.4 MG/KG, ONCE EVERY 3 WK
     Route: 042
     Dates: start: 20191205, end: 20191205
  23. NIVOLUMAB (DS-8201A STUDY) [Suspect]
     Active Substance: NIVOLUMAB
     Dosage: 360 MG, SINGLE
     Route: 042
     Dates: start: 20200116, end: 20200116
  24. AMBIEN [Concomitant]
     Active Substance: ZOLPIDEM TARTRATE
     Indication: SLEEP DISORDER
     Dosage: 5 MG, PRN
     Route: 048
     Dates: start: 20190821
  25. TYLENOL [Concomitant]
     Active Substance: ACETAMINOPHEN
     Indication: URINARY TRACT INFECTION
     Dosage: 650 MG, SINGLE
     Route: 048
     Dates: start: 20190821, end: 20190821
  26. TRASTUZUMAB DERUXTECAN. [Suspect]
     Active Substance: TRASTUZUMAB DERUXTECAN
     Indication: HER2 POSITIVE BREAST CANCER
     Dosage: 5.4 MG/KG, ONCE EVERY 3 WK
     Route: 042
     Dates: start: 20190821, end: 20190821
  27. TRASTUZUMAB DERUXTECAN. [Suspect]
     Active Substance: TRASTUZUMAB DERUXTECAN
     Dosage: 4.4 MG/KG, ONCE EVERY 3 WK
     Route: 042
     Dates: start: 20191024, end: 20191024
  28. PROCARDIA [Concomitant]
     Active Substance: NIFEDIPINE
     Indication: HYPERTENSION
     Dosage: 30 MG, QD
     Route: 048
     Dates: start: 20190724, end: 20190819
  29. TYLENOL [Concomitant]
     Active Substance: ACETAMINOPHEN
     Dosage: 650 MG, PRN
     Route: 048
     Dates: start: 20190821, end: 20190824
  30. TRASTUZUMAB DERUXTECAN. [Suspect]
     Active Substance: TRASTUZUMAB DERUXTECAN
     Dosage: 4.4 MG/KG, ONCE EVERY 3 WK
     Route: 042
     Dates: start: 20191003, end: 20191003
  31. LOVENOX [Concomitant]
     Active Substance: ENOXAPARIN SODIUM
     Dosage: 80 MG, QD
     Route: 058
     Dates: start: 20190821, end: 20190903
  32. BENADRYL [Concomitant]
     Active Substance: DIPHENHYDRAMINE HYDROCHLORIDE
     Indication: URINARY TRACT INFECTION
     Dosage: 25 MG, SINGLE
     Route: 042
     Dates: start: 20190821, end: 20190821
  33. MERREM [Concomitant]
     Active Substance: MEROPENEM
     Indication: URINARY TRACT INFECTION
     Dosage: 1000 MG,Q12 HOURS
     Route: 042
     Dates: start: 20190824, end: 20190830
  34. NIVOLUMAB (DS-8201A STUDY) [Suspect]
     Active Substance: NIVOLUMAB
     Dosage: 360 MG, SINGLE
     Route: 042
     Dates: start: 20191024, end: 20191024
  35. LIPITOR [Concomitant]
     Active Substance: ATORVASTATIN CALCIUM
     Indication: HYPERLIPIDAEMIA
     Dosage: 10 MG, QD
     Route: 048
     Dates: start: 20190315, end: 20191226
  36. DEMEROL [Concomitant]
     Active Substance: MEPERIDINE HYDROCHLORIDE
     Indication: URINARY TRACT INFECTION
     Dosage: 12.5 MG, SINGLE
     Route: 042
     Dates: start: 20190821, end: 20190821
  37. TOPROL XL [Concomitant]
     Active Substance: METOPROLOL SUCCINATE
     Indication: HYPERTENSION
     Dosage: 50 MG, QD
     Route: 048
     Dates: start: 20190822

REACTIONS (1)
  - Pancytopenia [Recovered/Resolved]

NARRATIVE: CASE EVENT DATE: 20190828
